FAERS Safety Report 5598030-X (Version None)
Quarter: 2008Q1

REPORT INFORMATION
  Report Type: 
  Country: None (occurrence: None)
  Receive Date: 20080122
  Receipt Date: 20080114
  Transmission Date: 20080703
  Serious: Yes (Other)
  Sender: FDA-Public Use
  Company Number: CN-BAYER-200810943GPV

PATIENT
  Age: 33 Year
  Sex: Male

DRUGS (2)
  1. NEXAVAR [Suspect]
     Indication: RENAL CELL CARCINOMA
     Dosage: TOTAL DAILY DOSE: 800 MG
     Route: 048
     Dates: start: 20071205
  2. INTERLEUKIN [Concomitant]
     Indication: RENAL CELL CARCINOMA
     Route: 065
     Dates: start: 20070901, end: 20071101

REACTIONS (1)
  - HEPATIC FUNCTION ABNORMAL [None]
